FAERS Safety Report 8774818 (Version 1)
Quarter: 2012Q4

REPORT INFORMATION
  Report Type: 
  Country: US (occurrence: US)
  Receive Date: 20120910
  Receipt Date: 20120910
  Transmission Date: 20130627
  Serious: No
  Sender: FDA-Public Use
  Company Number: US-PFIZER INC-2012221396

PATIENT
  Age: 67 Year
  Sex: Female
  Weight: 86.17 kg

DRUGS (4)
  1. CHANTIX [Suspect]
     Indication: SMOKING CESSATION THERAPY
     Dosage: 0.5 mg, 1x/day
     Route: 048
     Dates: start: 20120902, end: 201209
  2. CHANTIX [Suspect]
     Dosage: 0.5 mg, 2x/day
     Route: 048
     Dates: start: 201209
  3. AMOXYCILLIN/CLAVULANIC ACID [Concomitant]
     Indication: INFECTION
     Dosage: 50/125 mg, UNK
  4. AMOXYCILLIN/CLAVULANIC ACID [Concomitant]
     Indication: RASH

REACTIONS (1)
  - Rash [Not Recovered/Not Resolved]
